FAERS Safety Report 6804555-9 (Version None)
Quarter: 2010Q2

REPORT INFORMATION
  Report Type: 
  Country: None (occurrence: None)
  Receive Date: 20100628
  Receipt Date: 20070614
  Transmission Date: 20101027
  Serious: No
  Sender: FDA-Public Use
  Company Number: US-PFIZER INC-2007029216

PATIENT
  Sex: Male
  Weight: 28.58 kg

DRUGS (3)
  1. GENOTROPIN [Suspect]
     Indication: HYPOTHALAMO-PITUITARY DISORDER
     Dosage: 1 EVERY NA DAYS
     Dates: start: 20030101
  2. TESTOSTERONE [Concomitant]
  3. OSTEO BI-FLEX [Concomitant]

REACTIONS (5)
  - ARTHRALGIA [None]
  - BLOOD GLUCOSE INCREASED [None]
  - DIZZINESS [None]
  - MUSCULOSKELETAL PAIN [None]
  - PAIN IN EXTREMITY [None]
